FAERS Safety Report 15660807 (Version 2)
Quarter: 2019Q1

REPORT INFORMATION
  Report Type: Spontaneous
  Country: US (occurrence: US)
  Receive Date: 20181127
  Receipt Date: 20190131
  Transmission Date: 20190417
  Serious: Yes (Other)
  Sender: FDA-Public Use
  Company Number: US-BRISTOL-MYERS SQUIBB COMPANY-BMS-2018-108777

PATIENT
  Sex: Male
  Weight: 84.36 kg

DRUGS (1)
  1. ORENCIA [Suspect]
     Active Substance: ABATACEPT
     Indication: RHEUMATOID ARTHRITIS
     Dosage: UNK
     Route: 042
     Dates: start: 20181016

REACTIONS (6)
  - Respiratory rate increased [Unknown]
  - Drug ineffective [Unknown]
  - Chest pain [Unknown]
  - Headache [Unknown]
  - Pruritus [Recovered/Resolved]
  - Cardiac disorder [Unknown]
